FAERS Safety Report 6471943-2 (Version None)
Quarter: 2009Q4

REPORT INFORMATION
  Report Type: 
  Country: None (occurrence: None)
  Receive Date: 20091203
  Receipt Date: 20080724
  Transmission Date: 20100525
  Serious: Yes (Life-Threatening, Hospitalization, Disabling)
  Sender: FDA-Public Use
  Company Number: JP-ELI_LILLY_AND_COMPANY-JP200804000356

PATIENT
  Sex: Male
  Weight: 48 kg

DRUGS (8)
  1. GEMZAR [Suspect]
     Indication: NON-SMALL CELL LUNG CANCER
     Dosage: 1471 MG, OTHER
     Route: 042
     Dates: start: 20080218, end: 20080218
  2. CARBOMERCK [Concomitant]
     Indication: NON-SMALL CELL LUNG CANCER
     Dosage: 310 MG, OTHER
     Route: 042
     Dates: start: 20080218, end: 20080218
  3. CODEINE PHOSPHATE [Concomitant]
     Dosage: 30 MG, 4/D
     Route: 048
  4. MAGMITT [Concomitant]
     Dosage: 250 MG, 3/D
     Route: 048
  5. GASTER [Concomitant]
     Dosage: 20 MG, 2/D
     Route: 048
  6. NORMAL SALINE [Concomitant]
     Indication: PROPHYLAXIS
     Dosage: UNK, UNK
     Route: 042
     Dates: start: 20080218, end: 20080218
  7. KYTRIL [Concomitant]
     Indication: PROPHYLAXIS
     Dosage: 3 MG, UNK
     Route: 042
     Dates: start: 20080218, end: 20080218
  8. DECADRON [Concomitant]
     Indication: PROPHYLAXIS
     Dosage: 8 MG, UNK
     Route: 042
     Dates: start: 20080218, end: 20080218

REACTIONS (2)
  - CEREBRAL HAEMORRHAGE [None]
  - PYREXIA [None]
